FAERS Safety Report 8808640 (Version 2)
Quarter: 2013Q1

REPORT INFORMATION
  Report Type: Report from Study
  Country: NZ (occurrence: NZ)
  Receive Date: 20120926
  Receipt Date: 20130109
  Transmission Date: 20140127
  Serious: Yes (Hospitalization)
  Sender: FDA-Public Use
  Company Number: PHHY2012NZ083254

PATIENT
  Sex: Male

DRUGS (2)
  1. CLOZARIL [Suspect]
     Indication: SCHIZOPHRENIA
     Dates: start: 20120122, end: 20120215
  2. CLOZARIL [Suspect]
     Dosage: UNK UKN, UNK
     Dates: start: 20120925

REACTIONS (4)
  - Enterocolitis infectious [Unknown]
  - Abdominal discomfort [Unknown]
  - Abdominal pain [Unknown]
  - Constipation [Unknown]
